FAERS Safety Report 8521741 (Version 3)
Quarter: 2012Q4

REPORT INFORMATION
  Report Type: 
  Country: US (occurrence: US)
  Receive Date: 20120419
  Receipt Date: 20121221
  Transmission Date: 20130627
  Serious: Yes (Hospitalization, Other)
  Sender: FDA-Public Use
  Company Number: US-BAYER-2012-026969

PATIENT
  Age: 19 Year
  Sex: Female
  Weight: 64.85 kg

DRUGS (4)
  1. YAZ [Suspect]
     Indication: PREMENSTRUAL SYNDROME
     Dosage: UNK
     Dates: start: 200901, end: 20090411
  2. YAZ [Suspect]
     Indication: ACNE
  3. SYMBICORT [Concomitant]
  4. AMOXICILLIN [Concomitant]
     Dosage: 500 mg, UNK
     Route: 048

REACTIONS (3)
  - Cerebral infarction [None]
  - Cerebrovascular accident [None]
  - Thrombosis [None]
